FAERS Safety Report 6917811-0 (Version None)
Quarter: 2010Q3

REPORT INFORMATION
  Report Type: 
  Country: None (occurrence: None)
  Receive Date: 20100810
  Receipt Date: 20100803
  Transmission Date: 20110219
  Serious: Yes (Death, Hospitalization, Other)
  Sender: FDA-Public Use
  Company Number: US-AMGEN-QUU403437

PATIENT
  Sex: Male

DRUGS (10)
  1. NPLATE [Suspect]
     Indication: IDIOPATHIC THROMBOCYTOPENIC PURPURA
     Dates: start: 20081119, end: 20090311
  2. IMMU-G [Concomitant]
     Route: 042
     Dates: start: 20080627
  3. ALBUTEROL SULATE [Concomitant]
  4. NORVASC [Concomitant]
  5. NEXIUM [Concomitant]
  6. CLARITIN [Concomitant]
  7. KLONOPIN [Concomitant]
  8. ZOCOR [Concomitant]
  9. COUMADIN [Concomitant]
  10. AMBIEN [Concomitant]

REACTIONS (2)
  - LYMPHADENOPATHY MEDIASTINAL [None]
  - PULMONARY EMBOLISM [None]
